FAERS Safety Report 15202774 (Version 2)
Quarter: 2019Q2

REPORT INFORMATION
  Report Type: Spontaneous
  Country: CH (occurrence: CH)
  Receive Date: 20180726
  Receipt Date: 20190424
  Transmission Date: 20190711
  Serious: Yes (Death)
  Sender: FDA-Public Use
  Company Number: CH-ACTELION-A-CH2018-175854

PATIENT
  Sex: Male
  Weight: 104 kg

DRUGS (9)
  1. OPSUMIT [Suspect]
     Active Substance: MACITENTAN
     Indication: PULMONARY HYPERTENSION
     Dosage: 10 MG, QD
     Route: 048
     Dates: start: 20140423, end: 20140430
  2. PLAVIX [Concomitant]
     Active Substance: CLOPIDOGREL BISULFATE
     Indication: CORONARY ARTERY DISEASE
     Dosage: 75 MG, QD
     Route: 048
     Dates: start: 2007, end: 20140430
  3. REVATIO [Concomitant]
     Active Substance: SILDENAFIL CITRATE
     Indication: PULMONARY HYPERTENSION
     Dosage: 20 MG, BID
     Route: 048
     Dates: start: 2010, end: 20140430
  4. DILATREND [Concomitant]
     Active Substance: CARVEDILOL
     Indication: CORONARY ARTERY DISEASE
     Dosage: 25 MG, BID
     Route: 048
     Dates: start: 2010, end: 20140430
  5. DILATREND [Concomitant]
     Active Substance: CARVEDILOL
     Indication: CARDIAC FAILURE
  6. INSULIN [Concomitant]
     Active Substance: INSULIN NOS
     Indication: DIABETES MELLITUS
     Dosage: UNK
     Dates: start: 2010, end: 20140430
  7. MARCOUMAR [Concomitant]
     Active Substance: PHENPROCOUMON
     Indication: PULMONARY HYPERTENSION
  8. TOREM [Concomitant]
     Active Substance: TORSEMIDE
     Indication: CARDIAC FAILURE
     Dosage: 10 MG, BID
     Route: 048
     Dates: start: 2010, end: 20140430
  9. MARCOUMAR [Concomitant]
     Active Substance: PHENPROCOUMON
     Indication: CARDIAC VALVE PROSTHESIS USER
     Dosage: UNK, PRN
     Route: 048
     Dates: start: 20140417, end: 20140430

REACTIONS (1)
  - Right ventricular failure [Fatal]
